FAERS Safety Report 21230249 (Version 1)
Quarter: 2022Q3

REPORT INFORMATION
  Report Type: Spontaneous
  Country: CN (occurrence: CN)
  Receive Date: 20220818
  Receipt Date: 20220818
  Transmission Date: 20221027
  Serious: Yes (Other)
  Sender: FDA-Public Use
  Company Number: CN-JNJFOC-20220834179

PATIENT

DRUGS (2)
  1. AMIVANTAMAB [Suspect]
     Active Substance: AMIVANTAMAB
     Indication: Non-small cell lung cancer
     Route: 065
     Dates: start: 202008, end: 202112
  2. LAZERTINIB [Suspect]
     Active Substance: LAZERTINIB
     Indication: Non-small cell lung cancer
     Route: 065
     Dates: start: 202008, end: 202112

REACTIONS (11)
  - Embolism [Unknown]
  - Thrombocytopenia [Unknown]
  - Gamma-glutamyltransferase increased [Unknown]
  - Oedema peripheral [Unknown]
  - Disease progression [Unknown]
  - Therapeutic product effect incomplete [Unknown]
  - Interstitial lung disease [Unknown]
  - Rash [Unknown]
  - Alanine aminotransferase increased [Unknown]
  - Infusion related reaction [Unknown]
  - Paronychia [Unknown]
